FAERS Safety Report 19951609 (Version 2)
Quarter: 2021Q4

REPORT INFORMATION
  Report Type: Spontaneous
  Country: FR (occurrence: FR)
  Receive Date: 20211013
  Receipt Date: 20211026
  Transmission Date: 20220303
  Serious: Yes (Hospitalization)
  Sender: FDA-Public Use
  Company Number: NVSC2021FR232201

PATIENT
  Age: 42 Year
  Sex: Male

DRUGS (12)
  1. OLANZAPINE [Suspect]
     Active Substance: OLANZAPINE
     Indication: Agitation
     Dosage: 10 MG, QD
     Route: 065
     Dates: start: 2019, end: 2019
  2. OLANZAPINE [Suspect]
     Active Substance: OLANZAPINE
     Indication: Psychotic symptom
     Dosage: 20 MG, QD
     Route: 065
     Dates: start: 2019, end: 2019
  3. PROMETHAZINE [Suspect]
     Active Substance: PROMETHAZINE HYDROCHLORIDE
     Indication: Agitation
     Dosage: 100 MG, (SINGLE DOSE)
     Route: 030
     Dates: start: 2019
  4. PROMETHAZINE [Suspect]
     Active Substance: PROMETHAZINE HYDROCHLORIDE
     Indication: Psychotic symptom
     Dosage: 50 MG THREE DOSES
     Route: 030
     Dates: start: 2019
  5. DIAZEPAM [Suspect]
     Active Substance: DIAZEPAM
     Indication: Agitation
     Dosage: 40 MG, QD
     Route: 065
     Dates: start: 2019
  6. DIAZEPAM [Suspect]
     Active Substance: DIAZEPAM
     Indication: Psychotic symptom
  7. CHLORPROMAZINE [Suspect]
     Active Substance: CHLORPROMAZINE
     Indication: Agitation
     Dosage: 100 MG, UNKNOWN
     Route: 048
     Dates: start: 2019
  8. CHLORPROMAZINE [Suspect]
     Active Substance: CHLORPROMAZINE
     Indication: Psychotic symptom
     Dosage: 12.5 MG ONE DOSE
     Route: 030
     Dates: start: 2019
  9. CHLORPROMAZINE [Suspect]
     Active Substance: CHLORPROMAZINE
     Dosage: 25 MG THREE DOSES
     Route: 030
     Dates: start: 2019
  10. HALOPERIDOL [Suspect]
     Active Substance: HALOPERIDOL
     Indication: Agitation
     Dosage: 5 MG, FOUR DOSES
     Route: 030
     Dates: start: 2019
  11. HALOPERIDOL [Suspect]
     Active Substance: HALOPERIDOL
     Indication: Psychotic symptom
  12. BISOPROLOL [Concomitant]
     Active Substance: BISOPROLOL
     Indication: Sinus tachycardia
     Dosage: 5 MG, QD
     Route: 065
     Dates: start: 2019

REACTIONS (2)
  - Haemodynamic instability [Recovering/Resolving]
  - Neuroleptic malignant syndrome [Recovering/Resolving]

NARRATIVE: CASE EVENT DATE: 20190101
